FAERS Safety Report 5979259-5 (Version None)
Quarter: 2008Q4

REPORT INFORMATION
  Report Type: 
  Country: None (occurrence: None)
  Receive Date: 20081204
  Receipt Date: 20080926
  Transmission Date: 20090506
  Serious: No
  Sender: FDA-Public Use
  Company Number: US-ABBOTT-08P-163-0478302-00

PATIENT
  Sex: Male
  Weight: 74.91 kg

DRUGS (11)
  1. TRICOR [Suspect]
     Indication: BLOOD CHOLESTEROL
     Route: 048
     Dates: start: 20050101
  2. METOPROLOL SUCCINATE [Concomitant]
     Indication: BLOOD PRESSURE
     Dates: start: 19580101
  3. DIOVAN HCT [Concomitant]
     Indication: BLOOD PRESSURE
     Dosage: 160MG IN AM; 80MG IN PM
     Route: 048
  4. LEVOTHYROXINE SODIUM [Concomitant]
     Indication: THYROID DISORDER
     Route: 048
     Dates: start: 20040101
  5. ROSUVASTATIN [Concomitant]
     Indication: BLOOD CHOLESTEROL
     Route: 048
     Dates: start: 20060101
  6. CYANOCOBALAMIN-TANNIN COMPLEX [Concomitant]
     Indication: DRUG USE FOR UNKNOWN INDICATION
  7. ALPRAZOLAM [Concomitant]
     Indication: DRUG USE FOR UNKNOWN INDICATION
     Route: 048
  8. COSOPT [Concomitant]
     Indication: DRUG USE FOR UNKNOWN INDICATION
     Route: 047
  9. CLOPIDOGREL [Concomitant]
     Indication: VASCULAR GRAFT
     Route: 048
     Dates: start: 20050101
  10. ACETYLSALICYLIC ACID SRT [Concomitant]
     Indication: DRUG USE FOR UNKNOWN INDICATION
     Route: 048
     Dates: start: 20050101
  11. COENZYME Q10 [Concomitant]
     Indication: DRUG USE FOR UNKNOWN INDICATION
     Route: 048

REACTIONS (2)
  - BURNING SENSATION [None]
  - PHOTOSENSITIVITY REACTION [None]
